FAERS Safety Report 25164598 (Version 2)
Quarter: 2025Q2

REPORT INFORMATION
  Report Type: Spontaneous
  Country: US (occurrence: US)
  Receive Date: 20250406
  Receipt Date: 20250511
  Transmission Date: 20250717
  Serious: No
  Sender: SANOFI AVENTIS
  Company Number: US-SA-2025SA095987

PATIENT
  Age: 52 Year
  Sex: Female

DRUGS (1)
  1. DUPIXENT [Suspect]
     Active Substance: DUPILUMAB
     Indication: Eczema
     Dosage: 300 MG, QOW
     Route: 058
     Dates: start: 20250224

REACTIONS (12)
  - Glossodynia [Recovering/Resolving]
  - Toothache [Recovering/Resolving]
  - Myalgia [Recovering/Resolving]
  - Dry eye [Recovering/Resolving]
  - Condition aggravated [Recovering/Resolving]
  - Eye pruritus [Recovering/Resolving]
  - Arthralgia [Recovering/Resolving]
  - Dermatitis atopic [Not Recovered/Not Resolved]
  - Urticaria [Not Recovered/Not Resolved]
  - Pruritus [Not Recovered/Not Resolved]
  - Eczema [Not Recovered/Not Resolved]
  - Visual impairment [Unknown]

NARRATIVE: CASE EVENT DATE: 20250301
